FAERS Safety Report 4554532-6 (Version None)
Quarter: 2005Q1

REPORT INFORMATION
  Report Type: 
  Country: None (occurrence: None)
  Receive Date: 20050114
  Receipt Date: 20040209
  Transmission Date: 20050727
  Serious: Yes (Other)
  Sender: FDA-Public Use
  Company Number: GXKR2004GB00497

PATIENT
  Age: 66 Year
  Sex: Male
  Weight: 79.5 kg

DRUGS (3)
  1. BENDROFLUAZIDE (BENDROFLUMETHIAZIDE) [Suspect]
     Indication: HYPERTENSION
     Dosage: 2.5 MG, QD,
  2. ATENOLOL [Suspect]
     Indication: HYPERTENSION
     Dosage: 50 MG, QD,
  3. DOXAZOSIN MESYLATE [Suspect]
     Indication: HYPERTENSION
     Dosage: 4 MG, QD,

REACTIONS (4)
  - HEPATIC CYST [None]
  - HEPATIC FIBROSIS [None]
  - HEPATITIS INFECTIOUS [None]
  - INFLAMMATION [None]
